FAERS Safety Report 12262665 (Version 1)
Quarter: 2016Q2

REPORT INFORMATION
  Report Type: Spontaneous
  Country: US (occurrence: None)
  Receive Date: 20160412
  Receipt Date: 20160412
  Transmission Date: 20160815
  Serious: Yes (Disabling, Other)
  Sender: FDA-Public Use
  Company Number: None

PATIENT
  Age: 51 Year
  Sex: Female
  Weight: 76.2 kg

DRUGS (8)
  1. CUCURMIN (TUMERIC) [Concomitant]
  2. MAGNESIUM CITRATE. [Concomitant]
     Active Substance: MAGNESIUM CITRATE
  3. SPIRONALACTONE [Concomitant]
     Active Substance: SPIRONOLACTONE
  4. POTASSIUM CITRATE. [Concomitant]
     Active Substance: POTASSIUM CITRATE
  5. INDAPAMIDE. [Suspect]
     Active Substance: INDAPAMIDE
     Indication: HYPERTENSION
     Route: 048
     Dates: start: 20151006, end: 20160406
  6. HAIR, SKIN + NAILS [Concomitant]
  7. AMLODAPINE [Concomitant]
  8. HYALURONIC ACID [Concomitant]
     Active Substance: HYALURONIC ACID

REACTIONS (1)
  - Type 2 diabetes mellitus [None]

NARRATIVE: CASE EVENT DATE: 20160406
